FAERS Safety Report 7116142-6 (Version None)
Quarter: 2010Q4

REPORT INFORMATION
  Report Type: 
  Country: None (occurrence: None)
  Receive Date: 20101122
  Receipt Date: 20101109
  Transmission Date: 20110411
  Serious: Yes (Hospitalization)
  Sender: FDA-Public Use
  Company Number: PHHY2010NL76499

PATIENT
  Sex: Male

DRUGS (3)
  1. ZOMETA [Suspect]
     Dosage: 4MG/5ML ONCE PER 21 DAYS
     Dates: start: 20100819
  2. ZOMETA [Suspect]
     Dosage: 4MG/5ML ONCE PER 21 DAYS
     Dates: start: 20101019
  3. ZOMETA [Suspect]
     Dosage: 4MG/5ML ONCE PER 21 DAYS
     Dates: start: 20101109

REACTIONS (3)
  - CHEST DISCOMFORT [None]
  - GENERAL PHYSICAL HEALTH DETERIORATION [None]
  - RIB FRACTURE [None]
